FAERS Safety Report 5034990-3 (Version None)
Quarter: 2006Q2

REPORT INFORMATION
  Report Type: 
  Country: None (occurrence: None)
  Receive Date: 20060519
  Receipt Date: 20060412
  Transmission Date: 20061013
  Serious: No
  Sender: FDA-Public Use
  Company Number: TPA2006A00657

PATIENT
  Sex: Male

DRUGS (18)
  1. ROZEREM [Suspect]
     Indication: INSOMNIA
     Dosage: 8 MG, QHS, PER ORAL
     Route: 048
     Dates: start: 20060220, end: 20060403
  2. PROVIGIL (MODAFINIL) (200 MILLIGRAM) [Concomitant]
  3. ZOLOFT [Concomitant]
  4. ABILIFY (ARIPIPRAZOLE) (15 MILLIGRAM) [Concomitant]
  5. LAMICTAL [Concomitant]
  6. NEURONTIN (GABAPENTIN) (2000 MILLIGRAM) [Concomitant]
  7. SEROQUEL (QUETIAPINE FUMARATE) (200 MILLIGRAM) [Concomitant]
  8. LIDODERM PATCH (LIDOCAINE) (POULTICE OR PATCH) [Concomitant]
  9. NEXIUM (ESOMEPRAZOLE MAGNESIUM) (40 MILLIGRAM) [Concomitant]
  10. GLUCOPHAGE [Concomitant]
  11. AVANDIA (ROSIGLITAZONE MALEATE) (2 MILLIGRAM) [Concomitant]
  12. PRINIVIL (LISINOPRIL) (20 MILLIGRAM) [Concomitant]
  13. ZOCOR (SIMVASTATIN) (40 MILLIGRAM) [Concomitant]
  14. ATARAX (HYDROXYZINE HYDROCHLORIDE) (25 MILLIGRAM) [Concomitant]
  15. VITAMINS (VITAMINS) [Concomitant]
  16. SENOKOT (SENNA ALEXANDRINA) [Concomitant]
  17. COLACE (DOCUSATE SODIUM) [Concomitant]
  18. CHONDROITIN/GLUCOSAMINE (GLUCOSAMINE, CHONDROITIN SULFATE) [Concomitant]

REACTIONS (1)
  - VASCULITIS [None]
